FAERS Safety Report 8940971 (Version 3)
Quarter: 2012Q4

REPORT INFORMATION
  Report Type: 
  Country: US (occurrence: US)
  Receive Date: 20121203
  Receipt Date: 20121217
  Transmission Date: 20130627
  Serious: No
  Sender: FDA-Public Use
  Company Number: US-VERTEX PHARMACEUTICALS INC.-2012-025308

PATIENT
  Sex: Male
  Weight: 103 kg

DRUGS (9)
  1. VX-950 (TELAPREVIR) [Suspect]
     Indication: HEPATITIS C
     Dosage: 750 mg, tid
     Route: 048
     Dates: start: 20120830, end: 20121121
  2. PEGASYS [Suspect]
     Indication: HEPATITIS C
     Dosage: 180 ?g, qw
     Route: 058
     Dates: start: 20120830
  3. RIBAVIRIN [Suspect]
     Indication: HEPATITIS C
     Dosage: 600 mg, bid
     Route: 048
     Dates: start: 20120830
  4. ONGLYZA [Concomitant]
     Dosage: 2.5 mg, qd
  5. LISINOPRIL [Concomitant]
     Dosage: 2.5 mg, qd
  6. LOVAZA [Concomitant]
     Dosage: 1 g, UNK
  7. ALLOPURINOL [Concomitant]
     Dosage: 100 mg, qd
  8. MULTIVITAMIN CAP MINERALS [Concomitant]
  9. MILK THISTLE [Concomitant]

REACTIONS (3)
  - Scar [Not Recovered/Not Resolved]
  - Drug ineffective [Not Recovered/Not Resolved]
  - Pruritus [Not Recovered/Not Resolved]
